FAERS Safety Report 25389722 (Version 1)
Quarter: 2025Q2

REPORT INFORMATION
  Report Type: Spontaneous
  Country: RU (occurrence: RU)
  Receive Date: 20250603
  Receipt Date: 20250603
  Transmission Date: 20250717
  Serious: Yes (Hospitalization, Other)
  Sender: NOVARTIS
  Company Number: RU-002147023-NVSC2025RU087650

PATIENT

DRUGS (2)
  1. DABRAFENIB [Suspect]
     Active Substance: DABRAFENIB
     Indication: Product used for unknown indication
     Dosage: 150 MG, BID
     Route: 065
     Dates: start: 202311, end: 202503
  2. TRAMETINIB [Suspect]
     Active Substance: TRAMETINIB
     Indication: Product used for unknown indication
     Dosage: 2 MG, QD (TABLETS)
     Route: 065
     Dates: start: 202311, end: 202503

REACTIONS (6)
  - Haemorrhage [Unknown]
  - Haematochezia [Unknown]
  - Asthenia [Unknown]
  - Anaemia [Recovering/Resolving]
  - Intestinal metastasis [Unknown]
  - Disease progression [Unknown]

NARRATIVE: CASE EVENT DATE: 20231101
